FAERS Safety Report 8406267-7 (Version None)
Quarter: 2012Q2

REPORT INFORMATION
  Report Type: 
  Country: None (occurrence: None)
  Receive Date: 20120604
  Receipt Date: 20120525
  Transmission Date: 20120825
  Serious: Yes (Hospitalization)
  Sender: FDA-Public Use
  Company Number: US-BAYER-2012-040227

PATIENT
  Age: 36 Year
  Sex: Female
  Weight: 91.61 kg

DRUGS (10)
  1. PROZAC [Concomitant]
  2. YASMIN [Suspect]
     Indication: MENSTRUAL CYCLE MANAGEMENT
     Dosage: UNK
     Dates: start: 20091101
  3. TOPIRAMATE [Concomitant]
  4. NSAID'S [Concomitant]
  5. TOPAMAX [Concomitant]
     Indication: MIGRAINE
     Dosage: UNK
  6. FLUOXETINE [Concomitant]
     Indication: DEPRESSION
     Dosage: UNK
     Dates: start: 20040401
  7. ZYRTEC [Concomitant]
  8. VITAMIN C [Concomitant]
  9. WELLBUTRIN XL [Concomitant]
     Indication: DEPRESSION
     Dosage: UNK
     Dates: start: 20071201, end: 20091001
  10. DROSPIRENONE AND ETHINYL ESTRADIOL [Suspect]
     Indication: MENSTRUAL CYCLE MANAGEMENT
     Dosage: UNK
     Dates: start: 20090820, end: 20100430

REACTIONS (3)
  - INJURY [None]
  - PULMONARY EMBOLISM [None]
  - DEEP VEIN THROMBOSIS [None]
